FAERS Safety Report 19520607 (Version 1)
Quarter: 2021Q3

REPORT INFORMATION
  Report Type: Spontaneous
  Country: IN (occurrence: IN)
  Receive Date: 20210712
  Receipt Date: 20210712
  Transmission Date: 20211014
  Serious: Yes (Hospitalization)
  Sender: FDA-Public Use
  Company Number: IN-MYLANLABS-2021M1040989

PATIENT
  Age: 57 Year
  Sex: Female

DRUGS (2)
  1. CAPECITABINE. [Suspect]
     Active Substance: CAPECITABINE
     Indication: ADENOCARCINOMA PANCREAS
     Dosage: RECEIVED 2 CYCLES
     Route: 065
  2. GEMCITABINE. [Suspect]
     Active Substance: GEMCITABINE
     Indication: ADENOCARCINOMA PANCREAS
     Dosage: RECEIVED 2 CYCLES
     Route: 065

REACTIONS (4)
  - Small intestinal stenosis [Recovering/Resolving]
  - Pneumonia klebsiella [Unknown]
  - Post procedural fistula [Recovering/Resolving]
  - Pancreatic fistula [Recovering/Resolving]
